FAERS Safety Report 11060959 (Version 1)
Quarter: 2015Q2

REPORT INFORMATION
  Report Type: Spontaneous
  Country: US (occurrence: US)
  Receive Date: 20150424
  Receipt Date: 20150424
  Transmission Date: 20150821
  Serious: Yes (Hospitalization)
  Sender: FDA-Public Use
  Company Number: US-ASTRAZENECA-2015SE37020

PATIENT
  Age: 40 Year
  Sex: Male
  Weight: 32.7 kg

DRUGS (10)
  1. TOPAMAX [Concomitant]
     Active Substance: TOPIRAMATE
  2. NEXIUM [Suspect]
     Active Substance: ESOMEPRAZOLE MAGNESIUM
     Indication: ULCER
     Route: 050
  3. PRILOSEC [Suspect]
     Active Substance: OMEPRAZOLE MAGNESIUM
     Route: 048
  4. METOPROLOL TARTRATE. [Suspect]
     Active Substance: METOPROLOL TARTRATE
     Indication: HYPERTENSION
     Route: 048
     Dates: start: 201401
  5. NEXIUM [Suspect]
     Active Substance: ESOMEPRAZOLE MAGNESIUM
     Indication: ULCER
     Route: 048
  6. NEXIUM [Suspect]
     Active Substance: ESOMEPRAZOLE MAGNESIUM
     Indication: GASTROOESOPHAGEAL REFLUX DISEASE
     Route: 048
  7. NEXIUM [Suspect]
     Active Substance: ESOMEPRAZOLE MAGNESIUM
     Indication: GASTROOESOPHAGEAL REFLUX DISEASE
     Route: 050
  8. KEPPRA [Concomitant]
     Active Substance: LEVETIRACETAM
     Indication: SEIZURE
     Dates: start: 201406
  9. CLARITIN OTC [Concomitant]
     Indication: HYPERSENSITIVITY
  10. GABAPENTINE [Concomitant]
     Active Substance: GABAPENTIN
     Indication: SEIZURE
     Dates: start: 201403

REACTIONS (11)
  - Acute respiratory distress syndrome [Recovered/Resolved]
  - Respiratory distress [Recovered/Resolved]
  - Product use issue [Not Recovered/Not Resolved]
  - Klebsiella infection [Recovered/Resolved]
  - Proteus infection [Recovered/Resolved]
  - Off label use [Unknown]
  - Drug effect decreased [Unknown]
  - Dyspnoea [Recovered/Resolved]
  - Nephrolithiasis [Recovered/Resolved]
  - Respiratory tract infection [Unknown]
  - Staphylococcal infection [Recovered/Resolved]

NARRATIVE: CASE EVENT DATE: 201401
